FAERS Safety Report 8970869 (Version 1)
Quarter: 2012Q4

REPORT INFORMATION
  Report Type: 
  Country: US (occurrence: US)
  Receive Date: 20121218
  Receipt Date: 20121218
  Transmission Date: 20130627
  Serious: Yes (Other)
  Sender: FDA-Public Use
  Company Number: US-PFIZER INC-2012310090

PATIENT
  Sex: Female

DRUGS (4)
  1. LYRICA [Suspect]
     Indication: PAIN
     Dosage: 100 mg, 3x/day
     Dates: end: 201211
  2. LYRICA [Suspect]
     Dosage: 100 mg, 3x/day
     Dates: start: 2012
  3. PREMARIN [Suspect]
     Dosage: UNK
  4. DURAGESIC [Concomitant]
     Dosage: UNK

REACTIONS (4)
  - Somnambulism [Unknown]
  - Fall [Unknown]
  - Head injury [Unknown]
  - Pain [Unknown]
